FAERS Safety Report 6093115-6 (Version None)
Quarter: 2009Q1

REPORT INFORMATION
  Report Type: 
  Country: None (occurrence: None)
  Receive Date: 20090226
  Receipt Date: 20090220
  Transmission Date: 20090719
  Serious: Yes (Other)
  Sender: FDA-Public Use
  Company Number: US-JNJFOC-20090205845

PATIENT
  Age: 18 Year
  Sex: Male
  Weight: 68.04 kg

DRUGS (2)
  1. CONCERTA [Suspect]
     Indication: ATTENTION DEFICIT/HYPERACTIVITY DISORDER
     Route: 048
  2. ABILIFY [Concomitant]
     Indication: SLEEP DISORDER
     Route: 048

REACTIONS (5)
  - DECREASED APPETITE [None]
  - DEVELOPMENTAL DELAY [None]
  - FIGHT IN SCHOOL [None]
  - INSOMNIA [None]
  - TREATMENT NONCOMPLIANCE [None]
